FAERS Safety Report 5355962-5 (Version None)
Quarter: 2007Q2

REPORT INFORMATION
  Report Type: 
  Country: None (occurrence: None)
  Receive Date: 20070613
  Receipt Date: 20070604
  Transmission Date: 20071010
  Serious: Yes (Other)
  Sender: FDA-Public Use
  Company Number: US-SANOFI-SYNTHELABO-A03200702151

PATIENT
  Sex: Female
  Weight: 68 kg

DRUGS (4)
  1. IMITREX [Concomitant]
     Dosage: UNK
     Route: 065
  2. PROZAC [Concomitant]
     Dosage: UNK
     Route: 065
  3. AMBIEN [Suspect]
     Dosage: 5-10 MG
     Route: 048
     Dates: start: 19950101, end: 20010101
  4. AMBIEN [Suspect]
     Indication: STRESS
     Dosage: 5-10 MG
     Route: 048
     Dates: start: 19950101, end: 20010101

REACTIONS (11)
  - ABNORMAL BEHAVIOUR [None]
  - AMNESIA [None]
  - CERVICAL VERTEBRAL FRACTURE [None]
  - CONVULSION [None]
  - LOSS OF CONSCIOUSNESS [None]
  - SEXUAL ASSAULT VICTIM [None]
  - SLEEP TALKING [None]
  - SLEEP WALKING [None]
  - SOMNOLENCE [None]
  - VICTIM OF CRIME [None]
  - WEIGHT INCREASED [None]
